FAERS Safety Report 12611080 (Version 1)
Quarter: 2016Q3

REPORT INFORMATION
  Report Type: Spontaneous
  Country: DE (occurrence: DE)
  Receive Date: 20160801
  Receipt Date: 20160801
  Transmission Date: 20161109
  Serious: No
  Sender: FDA-Public Use
  Company Number: DE-009507513-1607DEU010563

PATIENT
  Age: 49 Year
  Sex: Female

DRUGS (1)
  1. ECURAL [Suspect]
     Active Substance: MOMETASONE
     Dosage: UNK
     Route: 047

REACTIONS (3)
  - Incorrect route of drug administration [Unknown]
  - Product packaging confusion [Unknown]
  - Wrong drug administered [Unknown]

NARRATIVE: CASE EVENT DATE: 20160723
